FAERS Safety Report 20815720 (Version 3)
Quarter: 2022Q3

REPORT INFORMATION
  Report Type: Spontaneous
  Country: US (occurrence: US)
  Receive Date: 20220511
  Receipt Date: 20220808
  Transmission Date: 20221027
  Serious: Yes (Other)
  Sender: FDA-Public Use
  Company Number: US-PFIZER INC-202200630754

PATIENT
  Age: 66 Year
  Sex: Male

DRUGS (3)
  1. BRAFTOVI [Suspect]
     Active Substance: ENCORAFENIB
     Indication: Colon cancer
     Dosage: 75 MG, DAILY(TAKE 4 CAPSULES (300 MG TOTAL) BY MOUTH DAILY FOR 28 DAY)
     Route: 048
  2. BRAFTOVI [Suspect]
     Active Substance: ENCORAFENIB
     Indication: Nausea
  3. BRAFTOVI [Suspect]
     Active Substance: ENCORAFENIB
     Indication: Vomiting

REACTIONS (1)
  - Neutropenia [Unknown]
